FAERS Safety Report 4468074-X (Version None)
Quarter: 2004Q4

REPORT INFORMATION
  Report Type: 
  Country: None (occurrence: None)
  Receive Date: 20041004
  Receipt Date: 20041004
  Transmission Date: 20050328
  Serious: Yes (Other)
  Sender: FDA-Public Use
  Company Number: None

PATIENT
  Age: 83 Year
  Sex: Male
  Weight: 81.2 kg

DRUGS (10)
  1. TERAZOSIN HCL [Suspect]
  2. OXYBUTYNIN CHLORIDE [Concomitant]
  3. COUMADIN [Concomitant]
  4. TRIAMCINOLONE [Concomitant]
  5. IPATROPIUM BROMIDE [Concomitant]
  6. DILTIAZEM (INWOOD) [Concomitant]
  7. OMEPRAZOLE [Concomitant]
  8. TRIAMTERENE AND HYDROCHLOROTHIAZIDE [Concomitant]
  9. TERAZOSIN HCL [Concomitant]
  10. ALBUTEROL [Concomitant]

REACTIONS (1)
  - DIZZINESS [None]
